FAERS Safety Report 9772003 (Version 1)
Quarter: 2013Q4

REPORT INFORMATION
  Report Type: Spontaneous
  Country: IT (occurrence: None)
  Receive Date: 20131023
  Receipt Date: 20131023
  Transmission Date: 20140711
  Serious: Yes (Death)
  Sender: FDA-Public Use
  Company Number: ACO_38790_2013

PATIENT
  Age: 37 Year
  Sex: Female

DRUGS (1)
  1. FAMPYRA (DALFAMPRIDINE) TABLET, 10MG [Suspect]
     Indication: MULTIPLE SCLEROSIS
     Route: 048
     Dates: start: 20130514, end: 20130824

REACTIONS (1)
  - Death [None]
